FAERS Safety Report 17249816 (Version 6)
Quarter: 2022Q1

REPORT INFORMATION
  Report Type: Report from Study
  Country: US (occurrence: US)
  Receive Date: 20200109
  Receipt Date: 20220223
  Transmission Date: 20220423
  Serious: Yes (Other)
  Sender: FDA-Public Use
  Company Number: US-SHIRE-US202000426

PATIENT
  Age: 75 Year
  Sex: Male

DRUGS (16)
  1. TEDUGLUTIDE [Suspect]
     Active Substance: TEDUGLUTIDE
     Indication: Short-bowel syndrome
     Dosage: 1.7 UNK, QD
     Route: 058
     Dates: start: 20180427
  2. TEDUGLUTIDE [Suspect]
     Active Substance: TEDUGLUTIDE
     Indication: Short-bowel syndrome
     Dosage: 1.7 UNK, QD
     Route: 058
     Dates: start: 20180427
  3. TEDUGLUTIDE [Suspect]
     Active Substance: TEDUGLUTIDE
     Indication: Short-bowel syndrome
     Dosage: 1.7 UNK, QD
     Route: 058
     Dates: start: 20180427
  4. TEDUGLUTIDE [Suspect]
     Active Substance: TEDUGLUTIDE
     Indication: Short-bowel syndrome
     Dosage: 1.7 UNK, QD
     Route: 058
     Dates: start: 20180427
  5. TEDUGLUTIDE [Suspect]
     Active Substance: TEDUGLUTIDE
     Dosage: 0.150 UNK, QD
     Route: 058
     Dates: start: 20180427
  6. TEDUGLUTIDE [Suspect]
     Active Substance: TEDUGLUTIDE
     Dosage: 0.150 UNK, QD
     Route: 058
     Dates: start: 20180427
  7. TEDUGLUTIDE [Suspect]
     Active Substance: TEDUGLUTIDE
     Dosage: 0.150 UNK, QD
     Route: 058
     Dates: start: 20180427
  8. TEDUGLUTIDE [Suspect]
     Active Substance: TEDUGLUTIDE
     Dosage: 0.150 UNK, QD
     Route: 058
     Dates: start: 20180427
  9. TEDUGLUTIDE [Suspect]
     Active Substance: TEDUGLUTIDE
     Dosage: 1.67 MILLIGRAM, QD
     Route: 058
     Dates: start: 20190410, end: 20200117
  10. TEDUGLUTIDE [Suspect]
     Active Substance: TEDUGLUTIDE
     Dosage: 1.67 MILLIGRAM, QD
     Route: 058
     Dates: start: 20190410, end: 20200117
  11. TEDUGLUTIDE [Suspect]
     Active Substance: TEDUGLUTIDE
     Dosage: 1.67 MILLIGRAM, QD
     Route: 058
     Dates: start: 20190410, end: 20200117
  12. TEDUGLUTIDE [Suspect]
     Active Substance: TEDUGLUTIDE
     Dosage: 1.67 MILLIGRAM, QD
     Route: 058
     Dates: start: 20190410, end: 20200117
  13. TEDUGLUTIDE [Suspect]
     Active Substance: TEDUGLUTIDE
     Dosage: 0.14 MILLILITER, QD
     Route: 058
     Dates: start: 20210819
  14. TEDUGLUTIDE [Suspect]
     Active Substance: TEDUGLUTIDE
     Dosage: 0.14 MILLILITER, QD
     Route: 058
     Dates: start: 20210819
  15. TEDUGLUTIDE [Suspect]
     Active Substance: TEDUGLUTIDE
     Dosage: 0.14 MILLILITER, QD
     Route: 058
     Dates: start: 20210819
  16. TEDUGLUTIDE [Suspect]
     Active Substance: TEDUGLUTIDE
     Dosage: 0.14 MILLILITER, QD
     Route: 058
     Dates: start: 20210819

REACTIONS (9)
  - Renal impairment [Unknown]
  - Nephrolithiasis [Not Recovered/Not Resolved]
  - Constipation [Not Recovered/Not Resolved]
  - Drug ineffective [Not Recovered/Not Resolved]
  - Nervousness [Unknown]
  - Asthenia [Unknown]
  - Weight decreased [Unknown]
  - Injection site pain [Not Recovered/Not Resolved]
  - Illness [Unknown]

NARRATIVE: CASE EVENT DATE: 20190106
